FAERS Safety Report 11101322 (Version 3)
Quarter: 2018Q3

REPORT INFORMATION
  Report Type: Spontaneous
  Country: US (occurrence: US)
  Receive Date: 20150508
  Receipt Date: 20180717
  Transmission Date: 20181010
  Serious: Yes (Other)
  Sender: FDA-Public Use
  Company Number: US-PFIZER INC-2015153760

PATIENT
  Age: 49 Year
  Sex: Female
  Weight: 118 kg

DRUGS (2)
  1. GENOTROPIN MQ [Suspect]
     Active Substance: SOMATROPIN
     Indication: HYPOPITUITARISM
     Dosage: 0.4 MG, DAILY
     Route: 058
     Dates: start: 201205
  2. GENOTROPIN MQ [Suspect]
     Active Substance: SOMATROPIN
     Indication: GROWTH HORMONE DEFICIENCY
     Dosage: 0.8 MG, DAILY
     Route: 058
     Dates: start: 20150331

REACTIONS (10)
  - Pneumonia [Unknown]
  - Somnolence [Unknown]
  - Fatigue [Unknown]
  - Weight increased [Unknown]
  - Eating disorder [Unknown]
  - Vitamin D decreased [Unknown]
  - Menstruation irregular [Unknown]
  - Stress [Unknown]
  - Hot flush [Unknown]
  - Anti-Muellerian hormone level decreased [Unknown]

NARRATIVE: CASE EVENT DATE: 20160123
